FAERS Safety Report 9778118 (Version 1)
Quarter: 2013Q4

REPORT INFORMATION
  Report Type: Spontaneous
  Country: AT (occurrence: AT)
  Receive Date: 20131223
  Receipt Date: 20131223
  Transmission Date: 20140711
  Serious: Yes (Hospitalization)
  Sender: FDA-Public Use
  Company Number: AT-JNJFOC-20131211106

PATIENT
  Age: 74 Year
  Sex: Male

DRUGS (3)
  1. REMICADE [Suspect]
     Indication: RHEUMATOID ARTHRITIS
     Route: 042
     Dates: start: 2006
  2. EBETREXAT [Concomitant]
     Route: 065
     Dates: start: 2006
  3. APREDNISLON [Concomitant]
     Route: 065
     Dates: start: 2006

REACTIONS (1)
  - Acute coronary syndrome [Recovered/Resolved]
